FAERS Safety Report 8302808-9 (Version None)
Quarter: 2012Q2

REPORT INFORMATION
  Report Type: 
  Country: None (occurrence: None)
  Receive Date: 20120420
  Receipt Date: 20120413
  Transmission Date: 20120825
  Serious: Yes (Hospitalization, Other)
  Sender: FDA-Public Use
  Company Number: US-ABBOTT-12P-163-0888410-00

PATIENT
  Sex: Male

DRUGS (1)
  1. HUMIRA [Suspect]
     Indication: PRODUCT USED FOR UNKNOWN INDICATION
     Route: 058
     Dates: start: 20100302

REACTIONS (11)
  - CARDIOMEGALY [None]
  - FEELING ABNORMAL [None]
  - RESPIRATORY DISORDER [None]
  - DEPRESSION [None]
  - EJECTION FRACTION DECREASED [None]
  - CARDIAC DISORDER [None]
  - VENTRICULAR DYSFUNCTION [None]
  - INSOMNIA [None]
  - AFFECT LABILITY [None]
  - CARDIAC FAILURE [None]
  - FLUID RETENTION [None]
